FAERS Safety Report 7070266-0 (Version None)
Quarter: 2010Q4

REPORT INFORMATION
  Report Type: 
  Country: None (occurrence: None)
  Receive Date: 20101028
  Receipt Date: 20100923
  Transmission Date: 20110411
  Serious: No
  Sender: FDA-Public Use
  Company Number: US-WYE-H17732310

PATIENT
  Sex: Male
  Weight: 90.8 kg

DRUGS (8)
  1. PANTOPRAZOLE [Suspect]
     Indication: EROSIVE OESOPHAGITIS
     Route: 048
     Dates: start: 20100301
  2. NEXIUM [Suspect]
     Indication: EROSIVE OESOPHAGITIS
     Dosage: 80 MG UNSPECIFIED FREQUENCY
     Route: 048
     Dates: end: 20100101
  3. DIOVAN [Concomitant]
  4. WELLBUTRIN [Concomitant]
  5. KLONOPIN [Concomitant]
  6. VERAPAMIL [Concomitant]
  7. ACIPHEX [Suspect]
     Indication: EROSIVE OESOPHAGITIS
     Dosage: UNKNOWN
     Dates: end: 20100101
  8. DEPAKOTE [Concomitant]

REACTIONS (3)
  - DRUG INEFFECTIVE [None]
  - DYSPEPSIA [None]
  - HICCUPS [None]
